FAERS Safety Report 23124708 (Version 2)
Quarter: 2024Q1

REPORT INFORMATION
  Report Type: Spontaneous
  Country: US (occurrence: US)
  Receive Date: 20231030
  Receipt Date: 20240108
  Transmission Date: 20240410
  Serious: No
  Sender: FDA-Public Use
  Company Number: US-OPELLA-2023OHG010337

PATIENT
  Age: 27 Year
  Sex: Female
  Weight: 56 kg

DRUGS (25)
  1. TRIAMCINOLONE ACETONIDE [Suspect]
     Active Substance: TRIAMCINOLONE ACETONIDE
     Indication: Dermatitis atopic
     Dosage: UNK
  2. TRIAMCINOLONE ACETONIDE [Suspect]
     Active Substance: TRIAMCINOLONE ACETONIDE
     Route: 065
  3. DUPIXENT [Suspect]
     Active Substance: DUPILUMAB
     Indication: Dermatitis atopic
     Dosage: 300 MG, QOW
     Route: 058
  4. DUPIXENT [Suspect]
     Active Substance: DUPILUMAB
     Route: 058
  5. TACROLIMUS [Suspect]
     Active Substance: TACROLIMUS
     Indication: Product used for unknown indication
     Dosage: UNK
  6. TACROLIMUS [Suspect]
     Active Substance: TACROLIMUS
     Route: 065
  7. EUCRISA [Suspect]
     Active Substance: CRISABOROLE
     Indication: Product used for unknown indication
     Dosage: UNK
  8. EUCRISA [Suspect]
     Active Substance: CRISABOROLE
     Route: 065
  9. PIMECROLIMUS [Suspect]
     Active Substance: PIMECROLIMUS
     Dosage: UNK
  10. PIMECROLIMUS [Suspect]
     Active Substance: PIMECROLIMUS
     Route: 065
  11. DESONIDE [Suspect]
     Active Substance: DESONIDE
     Dosage: UNK
  12. DESONIDE [Suspect]
     Active Substance: DESONIDE
     Route: 065
  13. CLOBETASOL [Suspect]
     Active Substance: CLOBETASOL
     Dosage: UNK
  14. CLOBETASOL [Suspect]
     Active Substance: CLOBETASOL
     Route: 065
  15. CIBINQO [Concomitant]
     Active Substance: ABROCITINIB
     Dosage: UNK
  16. TRETINOIN [Concomitant]
     Active Substance: TRETINOIN
     Dosage: UNK
  17. PROTOPIC [Concomitant]
     Active Substance: TACROLIMUS
     Dosage: UNK
  18. PROTOPIC [Concomitant]
     Active Substance: TACROLIMUS
     Route: 065
  19. ACYCLOVIR [Concomitant]
     Active Substance: ACYCLOVIR
     Dosage: UNK
  20. ACYCLOVIR [Concomitant]
     Active Substance: ACYCLOVIR
     Route: 065
  21. LORYNA [Concomitant]
     Active Substance: DROSPIRENONE\ETHINYL ESTRADIOL
     Dosage: LORYNA 0.02-3(28)
  22. LORYNA [Concomitant]
     Active Substance: DROSPIRENONE\ETHINYL ESTRADIOL
     Route: 065
  23. TRIAMCINOLONE [Concomitant]
     Active Substance: TRIAMCINOLONE
     Dosage: UNK
  24. ISOTRETINOIN [Concomitant]
     Active Substance: ISOTRETINOIN
     Indication: Product used for unknown indication
     Dosage: UNK
  25. TRETINION 0.025% CREAM [Concomitant]
     Indication: Product used for unknown indication
     Route: 065

REACTIONS (4)
  - Erythema [Recovered/Resolved]
  - Dermatitis atopic [Unknown]
  - Condition aggravated [Unknown]
  - Therapeutic response decreased [Unknown]
